FAERS Safety Report 9007963 (Version 2)
Quarter: 2013Q2

REPORT INFORMATION
  Report Type: Report from Study
  Country: DE (occurrence: DE)
  Receive Date: 20130111
  Receipt Date: 20130419
  Transmission Date: 20140414
  Serious: Yes (Death, Hospitalization, Other)
  Sender: FDA-Public Use
  Company Number: DE-ABBOTT-13P-062-1034301-00

PATIENT
  Age: 80 Year
  Sex: Female
  Weight: 66 kg

DRUGS (3)
  1. HUMIRA [Suspect]
     Indication: RHEUMATOID ARTHRITIS
     Route: 058
     Dates: start: 20091022, end: 20120808
  2. LISINOPRIL [Concomitant]
     Indication: HYPERTENSION
     Route: 048
     Dates: start: 20120214, end: 201208
  3. CALCIUM D3 [Concomitant]
     Indication: OSTEOPOROSIS
     Route: 048
     Dates: start: 20091024, end: 201208

REACTIONS (4)
  - Myocardial infarction [Fatal]
  - Thoracic vertebral fracture [Unknown]
  - Pneumonia [Unknown]
  - Cardiac failure [Fatal]
